FAERS Safety Report 19199787 (Version 2)
Quarter: 2022Q4

REPORT INFORMATION
  Report Type: Spontaneous
  Country: KR (occurrence: KR)
  Receive Date: 20210429
  Receipt Date: 20221125
  Transmission Date: 20230112
  Serious: Yes (Hospitalization, Other)
  Sender: FDA-Public Use
  Company Number: KR-009507513-2104KOR006841

PATIENT
  Age: 64 Year
  Sex: Male

DRUGS (4)
  1. PEMBROLIZUMAB [Suspect]
     Active Substance: PEMBROLIZUMAB
     Indication: Transitional cell carcinoma
     Dosage: 200 MILLIGRAM, Q3W
     Route: 042
  2. MEROPENEM [Concomitant]
     Active Substance: MEROPENEM
     Indication: Postoperative abscess
  3. TEICOPLANIN [Concomitant]
     Active Substance: TEICOPLANIN
     Indication: Postoperative abscess
     Route: 042
  4. AMIKACIN [Concomitant]
     Active Substance: AMIKACIN

REACTIONS (7)
  - Stevens-Johnson syndrome [Recovered/Resolved]
  - Toxic epidermal necrolysis [Recovered/Resolved]
  - Corneal epithelium defect [Recovered/Resolved]
  - Ulcerative keratitis [Recovered/Resolved]
  - Eyelid injury [Recovered/Resolved]
  - Conjunctival hyperaemia [Recovered/Resolved]
  - Conjunctivitis [Recovered/Resolved]
